FAERS Safety Report 8347412-1 (Version None)
Quarter: 2012Q2

REPORT INFORMATION
  Report Type: 
  Country: None (occurrence: None)
  Receive Date: 20120509
  Receipt Date: 20120426
  Transmission Date: 20120825
  Serious: Yes (Hospitalization)
  Sender: FDA-Public Use
  Company Number: US-ROCHE-1066450

PATIENT
  Sex: Male
  Weight: 82.54 kg

DRUGS (4)
  1. PEGASYS [Suspect]
     Indication: HEPATITIS C
     Route: 058
     Dates: start: 20110706
  2. BLINDED ALISPORIVIR [Suspect]
     Indication: HEPATITIS C
     Route: 048
     Dates: start: 20110706
  3. COPEGUS [Suspect]
     Indication: HEPATITIS C
     Route: 048
  4. NAPROSYN [Concomitant]

REACTIONS (2)
  - INFLUENZA LIKE ILLNESS [None]
  - TACHYCARDIA [None]
